FAERS Safety Report 5643806-3 (Version None)
Quarter: 2008Q1

REPORT INFORMATION
  Report Type: 
  Country: None (occurrence: None)
  Receive Date: 20080228
  Receipt Date: 20080221
  Transmission Date: 20080703
  Serious: Yes (Other)
  Sender: FDA-Public Use
  Company Number: US-MERCK-0802USA00831

PATIENT
  Age: 71 Year
  Sex: Female
  Weight: 72 kg

DRUGS (1)
  1. FOSAMAX PLUS D [Suspect]
     Indication: OSTEOPENIA
     Route: 048
     Dates: start: 20071201, end: 20071201

REACTIONS (2)
  - HYPERTENSION [None]
  - TACHYCARDIA [None]
